FAERS Safety Report 13071586 (Version 4)
Quarter: 2017Q3

REPORT INFORMATION
  Report Type: Report from Study
  Country: AU (occurrence: AU)
  Receive Date: 20161229
  Receipt Date: 20170712
  Transmission Date: 20171127
  Serious: Yes (Hospitalization)
  Sender: FDA-Public Use
  Company Number: AU-SA-2016SA034660

PATIENT
  Age: 56 Year
  Sex: Male
  Weight: 61 kg

DRUGS (10)
  1. FABRAZYME [Suspect]
     Active Substance: AGALSIDASE BETA
     Indication: FABRY^S DISEASE
     Dosage: 55 MG FORTNIGHTLY OVER 2 HOURSDOSE:
     Route: 041
     Dates: start: 2013
  2. FABRAZYME [Suspect]
     Active Substance: AGALSIDASE BETA
     Indication: FABRY^S DISEASE
     Dosage: 55 MG
     Route: 041
  3. FABRAZYME [Suspect]
     Active Substance: AGALSIDASE BETA
     Indication: FABRY^S DISEASE
     Dosage: 55 MG FORTNIGHTLY OVER 2 HOURSDOSE:
     Route: 041
     Dates: start: 2013
  4. FABRAZYME [Suspect]
     Active Substance: AGALSIDASE BETA
     Indication: FABRY^S DISEASE
     Dosage: 55 MG FORTNIGHTLY OVER 2 HOURSDOSE:
     Route: 041
     Dates: start: 2013
  5. FABRAZYME [Suspect]
     Active Substance: AGALSIDASE BETA
     Indication: FABRY^S DISEASE
     Dosage: 55 MG FORTNIGHTLY OVER 2 HOURSDOSE:
     Route: 041
     Dates: start: 2013
  6. PARACETAMOL [Concomitant]
     Active Substance: ACETAMINOPHEN
     Indication: PREMEDICATION
     Dosage: DOSE: 0.5-1 (UNITS: NOT PROVIDED)
  7. FABRAZYME [Suspect]
     Active Substance: AGALSIDASE BETA
     Indication: FABRY^S DISEASE
     Dosage: 55 MG FORTNIGHTLY OVER 2 HOURSDOSE:
     Route: 041
     Dates: start: 2013
  8. FABRAZYME [Suspect]
     Active Substance: AGALSIDASE BETA
     Indication: FABRY^S DISEASE
     Dosage: 55 MG FORTNIGHTLY OVER 2 HOURSDOSE:
     Route: 041
     Dates: start: 2013
  9. LORATADINE. [Concomitant]
     Active Substance: LORATADINE
     Indication: PREMEDICATION
     Dosage: DOSE: 10 (UNITS:NOT PROVIDED)
     Route: 048
  10. FABRAZYME [Suspect]
     Active Substance: AGALSIDASE BETA
     Indication: FABRY^S DISEASE
     Dosage: 55 MG FORTNIGHTLY OVER 2 HOURSDOSE:
     Route: 041
     Dates: start: 2013

REACTIONS (7)
  - Pain in extremity [Recovering/Resolving]
  - Poor quality sleep [Recovered/Resolved]
  - Weight increased [Unknown]
  - Phantom pain [Recovered/Resolved]
  - Asthma [Unknown]
  - Oesophageal food impaction [Recovered/Resolved]
  - Syncope [Recovered/Resolved]

NARRATIVE: CASE EVENT DATE: 20161109
